FAERS Safety Report 7643637-9 (Version None)
Quarter: 2011Q3

REPORT INFORMATION
  Report Type: 
  Country: None (occurrence: None)
  Receive Date: 20110729
  Receipt Date: 20110720
  Transmission Date: 20111222
  Serious: Yes (Hospitalization)
  Sender: FDA-Public Use
  Company Number: PHHY2011NL65271

PATIENT
  Sex: Male

DRUGS (2)
  1. ZOMETA [Suspect]
     Indication: PROSTATE CANCER METASTATIC
     Dosage: 4MG/5ML EVERY 28 DAYS
     Dates: start: 20100616
  2. ZOMETA [Suspect]
     Dosage: 4MG/5ML EVERY 28 DAYS
     Dates: start: 20100622

REACTIONS (3)
  - DYSPHAGIA [None]
  - PAIN IN JAW [None]
  - ARTHROPATHY [None]
